FAERS Safety Report 14067675 (Version 1)
Quarter: 2017Q4

REPORT INFORMATION
  Report Type: Spontaneous
  Country: FR (occurrence: FR)
  Receive Date: 20171009
  Receipt Date: 20171009
  Transmission Date: 20180321
  Serious: Yes (Hospitalization)
  Sender: FDA-Public Use
  Company Number: FR-PFIZER INC-2005032272

PATIENT
  Age: 20 Year
  Sex: Female

DRUGS (5)
  1. METHYL-GAG [Suspect]
     Active Substance: MITOGUAZONE
     Indication: LYMPHOMA
     Dosage: DAY 1-5
     Route: 042
     Dates: start: 20041130, end: 20041203
  2. DOXORUBICIN HCL [Suspect]
     Active Substance: DOXORUBICIN HYDROCHLORIDE
     Indication: LYMPHOMA
     Dosage: DAY 2
     Route: 042
     Dates: start: 20041201, end: 20041201
  3. ETOPOSIDE. [Suspect]
     Active Substance: ETOPOSIDE
     Indication: LYMPHOMA
     Dosage: DAY 1-3
     Route: 042
     Dates: start: 20041130, end: 20041202
  4. METHOTREXATE SODIUM. [Suspect]
     Active Substance: METHOTREXATE SODIUM
     Indication: LYMPHOMA
     Dosage: DAY 3
     Route: 042
     Dates: start: 20041202, end: 20041202
  5. IFOSFAMIDE. [Suspect]
     Active Substance: IFOSFAMIDE
     Indication: LYMPHOMA
     Dosage: DAILY INTERVAL: DAY 1-4
     Route: 042
     Dates: start: 20041130, end: 20041203

REACTIONS (7)
  - Paraesthesia [Recovered/Resolved]
  - Erythema [Recovered/Resolved]
  - Encephalopathy [Recovered/Resolved]
  - Nervous system disorder [Recovered/Resolved]
  - Panniculitis [Recovered/Resolved]
  - Muscle contractions involuntary [Recovered/Resolved]
  - Oedema peripheral [Recovered/Resolved]

NARRATIVE: CASE EVENT DATE: 20041203
